FAERS Safety Report 7405894-3 (Version None)
Quarter: 2011Q2

REPORT INFORMATION
  Report Type: 
  Country: None (occurrence: None)
  Receive Date: 20110411
  Receipt Date: 20110328
  Transmission Date: 20111010
  Serious: Yes (Life-Threatening, Hospitalization)
  Sender: FDA-Public Use
  Company Number: PL-JNJFOC-20110305159

PATIENT
  Sex: Female
  Weight: 41 kg

DRUGS (7)
  1. SANDIMMUNE [Concomitant]
     Indication: COLITIS ULCERATIVE
  2. REMICADE [Suspect]
     Indication: COLITIS ULCERATIVE
     Route: 042
  3. REMICADE [Suspect]
     Route: 042
  4. HEMOFER [Concomitant]
     Indication: COLITIS ULCERATIVE
  5. REMICADE [Suspect]
     Dosage: 3RD INFUSION
     Route: 042
  6. IMURAN [Concomitant]
     Indication: COLITIS ULCERATIVE
  7. ASAMAX [Concomitant]
     Indication: COLITIS ULCERATIVE

REACTIONS (4)
  - DYSPNOEA [None]
  - SWELLING FACE [None]
  - RASH GENERALISED [None]
  - INFUSION RELATED REACTION [None]
